FAERS Safety Report 19781977 (Version 1)
Quarter: 2021Q3

REPORT INFORMATION
  Report Type: Spontaneous
  Country: US (occurrence: US)
  Receive Date: 20210902
  Receipt Date: 20210902
  Transmission Date: 20211014
  Serious: No
  Sender: FDA-Public Use
  Company Number: US-ENDO PHARMACEUTICALS INC-2021-007401

PATIENT
  Sex: Female
  Weight: 52.16 kg

DRUGS (2)
  1. PREDNISONE. [Suspect]
     Active Substance: PREDNISONE
     Indication: RASH
     Dosage: 6 TABLETS FIRST DAY, 5 TABS THE SECOND DAY AND TAPER ALL THE WAY DOWN, UNKNOWN
     Route: 065
  2. PREDNISONE. [Suspect]
     Active Substance: PREDNISONE
     Dosage: 10 MG (5 TABLETS ON FIRST DAY, 4 TABS THE SECOND DAY AND TAPER ALL THE WAY DOWN), UNKNOWN
     Route: 065

REACTIONS (2)
  - Drug ineffective [Unknown]
  - Thinking abnormal [Unknown]
